FAERS Safety Report 10803465 (Version 1)
Quarter: 2015Q1

REPORT INFORMATION
  Report Type: Spontaneous
  Country: US (occurrence: US)
  Receive Date: 20150217
  Receipt Date: 20150217
  Transmission Date: 20150721
  Serious: No
  Sender: FDA-Public Use
  Company Number: US-RECKITT BENCKISER PHARMACEUTICAL, INC-RB-65901-2014

PATIENT

DRUGS (3)
  1. BUPRENORPHINE/ NALOXONE GENERIC [Suspect]
     Active Substance: BUPRENORPHINE\NALOXONE
     Indication: PAIN
     Dosage: DOSE INCREASED, TAKING EXTRA 4MG DAILY, CUTTING TO ACHIEVE DOSING
     Route: 060
     Dates: start: 201403
  2. SUBOXONE [Suspect]
     Active Substance: BUPRENORPHINE HYDROCHLORIDE\NALOXONE HYDROCHLORIDE
     Indication: PAIN
     Route: 060
  3. SUBOXONE [Suspect]
     Active Substance: BUPRENORPHINE HYDROCHLORIDE\NALOXONE HYDROCHLORIDE
     Indication: PAIN
     Dosage: SUBOXONE FILM
     Route: 060
     Dates: end: 201403

REACTIONS (6)
  - Wrong technique in drug usage process [Not Recovered/Not Resolved]
  - Off label use [Not Recovered/Not Resolved]
  - Therapeutic response decreased [Not Recovered/Not Resolved]
  - Pain in extremity [Recovered/Resolved]
  - Insomnia [Recovered/Resolved]
  - Extra dose administered [Not Recovered/Not Resolved]

NARRATIVE: CASE EVENT DATE: 201403
